FAERS Safety Report 13663767 (Version 1)
Quarter: 2017Q2

REPORT INFORMATION
  Report Type: Spontaneous
  Country: US (occurrence: US)
  Receive Date: 20170616
  Receipt Date: 20170616
  Transmission Date: 20170830
  Serious: Yes (Hospitalization, Other)
  Sender: FDA-Public Use
  Company Number: None

PATIENT
  Age: 70 Year
  Sex: Male

DRUGS (1)
  1. CAPECITABINE 500MG ACCORD [Suspect]
     Active Substance: CAPECITABINE
     Indication: NEUROENDOCRINE TUMOUR
     Dosage: 1000MG TWICE A DAY 14DAYS ON, 14DAYS OFF ORAL
     Route: 048
     Dates: start: 20170527, end: 20170603

REACTIONS (1)
  - Chest pain [None]

NARRATIVE: CASE EVENT DATE: 20170603
